FAERS Safety Report 9800366 (Version 3)
Quarter: 2014Q1

REPORT INFORMATION
  Report Type: Spontaneous
  Country: US (occurrence: US)
  Receive Date: 20140106
  Receipt Date: 20140128
  Transmission Date: 20141002
  Serious: Yes (Other)
  Sender: FDA-Public Use
  Company Number: US-DRREDDYS-USA/USA/14/0036859

PATIENT
  Age: 19 Year
  Sex: Female

DRUGS (2)
  1. ZENATANE [Suspect]
     Indication: ACNE
     Route: 065
     Dates: start: 20130923, end: 20140102
  2. EMOQUETTE [Concomitant]
     Indication: CONTRACEPTION
     Route: 065

REACTIONS (1)
  - Mood altered [Recovered/Resolved]
